FAERS Safety Report 7410285-5 (Version None)
Quarter: 2011Q2

REPORT INFORMATION
  Report Type: 
  Country: None (occurrence: None)
  Receive Date: 20110412
  Receipt Date: 20110401
  Transmission Date: 20111010
  Serious: Yes (Hospitalization)
  Sender: FDA-Public Use
  Company Number: US-BAYER-2011-008479

PATIENT
  Age: 31 Year
  Sex: Female

DRUGS (2)
  1. PARLODEL [Concomitant]
  2. MIRENA [Suspect]
     Indication: CONTRACEPTION
     Dosage: 20 ?G/D, CONT
     Route: 015
     Dates: start: 20090301, end: 20110121

REACTIONS (2)
  - DEVICE DISLOCATION [None]
  - BREAST TENDERNESS [None]
